FAERS Safety Report 8174353-5 (Version None)
Quarter: 2012Q1

REPORT INFORMATION
  Report Type: 
  Country: None (occurrence: None)
  Receive Date: 20120229
  Receipt Date: 20120228
  Transmission Date: 20120608
  Serious: Yes (Other)
  Sender: FDA-Public Use
  Company Number: US-JNJFOC-2010004004

PATIENT
  Age: 56 Year
  Sex: Female
  Weight: 52.2 kg

DRUGS (2)
  1. ROLAIDS MULTI-SYMPTOM [Suspect]
     Indication: FLATULENCE
     Dosage: DAILY DOSE TEXT: UNSPECIFIED
     Route: 048
  2. ACETAMINOPHEN [Concomitant]
     Indication: PAIN
     Dosage: DAILY DOSE TEXT: 2 CAPLETS EVERY 8 HOURS
     Route: 048

REACTIONS (3)
  - GASTROINTESTINAL DISORDER [None]
  - WEIGHT DECREASED [None]
  - GASTROINTESTINAL INFLAMMATION [None]
